FAERS Safety Report 24384671 (Version 1)
Quarter: 2024Q4

REPORT INFORMATION
  Report Type: Spontaneous
  Country: US (occurrence: US)
  Receive Date: 20241001
  Receipt Date: 20241001
  Transmission Date: 20250114
  Serious: No
  Sender: NOBELPHARMA
  Company Number: US-Nobelpharma America, LLC-NPA-2024-01669

PATIENT
  Sex: Male

DRUGS (2)
  1. HYFTOR [Suspect]
     Active Substance: SIROLIMUS
     Indication: Tuberous sclerosis complex
     Dosage: APPLY A THIN FILM TOPICALLY TO THE AFFECTED AREAS TWICE DAILY
     Dates: start: 20230526
  2. AFINITOR [Concomitant]
     Active Substance: EVEROLIMUS
     Dosage: DISPERSIBLE TABLETS

REACTIONS (1)
  - Skin plaque [Unknown]
